FAERS Safety Report 25343522 (Version 2)
Quarter: 2025Q2

REPORT INFORMATION
  Report Type: Report from Study
  Country: US (occurrence: US)
  Receive Date: 20250521
  Receipt Date: 20250530
  Transmission Date: 20250716
  Serious: Yes (Other)
  Sender: MALLINCKRODT
  Company Number: US-MALLINCKRODT-MNK202502934

PATIENT
  Age: 33 Year
  Sex: Female
  Weight: 132 kg

DRUGS (34)
  1. CORTICOTROPIN [Suspect]
     Active Substance: CORTICOTROPIN
     Indication: Systemic lupus erythematosus rash
     Route: 030
     Dates: start: 20230901
  2. CORTICOTROPIN [Suspect]
     Active Substance: CORTICOTROPIN
     Indication: Rheumatoid arthritis
  3. QUETIAPINE [Concomitant]
     Active Substance: QUETIAPINE
  4. HYDROXYZINE HYDROCHLORIDE [Concomitant]
     Active Substance: HYDROXYZINE HYDROCHLORIDE
  5. ESZOPICLONE [Concomitant]
     Active Substance: ESZOPICLONE
  6. BACLOFEN [Concomitant]
     Active Substance: BACLOFEN
  7. MYCOPHENOLIC ACID [Concomitant]
     Active Substance: MYCOPHENOLIC ACID
  8. TOPIRAMATE [Concomitant]
     Active Substance: TOPIRAMATE
  9. SYMBICORT [Concomitant]
     Active Substance: BUDESONIDE\FORMOTEROL FUMARATE DIHYDRATE
     Route: 055
  10. HYDROCODONE BITARTRATE AND ACETAMINOPHEN [Concomitant]
     Active Substance: ACETAMINOPHEN\HYDROCODONE BITARTRATE
  11. FEBUXOSTAT [Concomitant]
     Active Substance: FEBUXOSTAT
  12. PROPRANOLOL [Concomitant]
     Active Substance: PROPRANOLOL HYDROCHLORIDE
  13. ELIQUIS [Concomitant]
     Active Substance: APIXABAN
  14. REYVOW [Concomitant]
     Active Substance: LASMIDITAN
  15. CLONIDINE [Concomitant]
     Active Substance: CLONIDINE
  16. FOLIC ACID [Concomitant]
     Active Substance: FOLIC ACID
  17. DIPHENHYDRAMINE [Concomitant]
     Active Substance: DIPHENHYDRAMINE
  18. BIOTIN [Concomitant]
     Active Substance: BIOTIN
  19. MULTIVITAMIN [ASCORBIC ACID;COLECALCIFEROL;NICOTINAMIDE;PYRIDOXINE HYD [Concomitant]
  20. CALCIUM\VITAMIN D [Concomitant]
     Active Substance: CALCIUM\VITAMIN D
  21. DICLOFENAC [Concomitant]
     Active Substance: DICLOFENAC
  22. DOCUSATE SODIUM [Concomitant]
     Active Substance: DOCUSATE SODIUM
  23. CHOLECALCIFEROL [Concomitant]
     Active Substance: CHOLECALCIFEROL
  24. ALBUTEROL [Concomitant]
     Active Substance: ALBUTEROL
  25. DOXYCYCLINE HYCLATE [Concomitant]
     Active Substance: DOXYCYCLINE HYCLATE
     Dates: start: 20250512
  26. CEFUROXIME [Concomitant]
     Active Substance: CEFUROXIME
     Dates: start: 20250509
  27. VENTOLIN HFA [Concomitant]
     Active Substance: ALBUTEROL SULFATE
     Route: 055
     Dates: start: 20250512
  28. FETZIMA [Concomitant]
     Active Substance: LEVOMILNACIPRAN HYDROCHLORIDE
  29. CLONAZEPAM [Concomitant]
     Active Substance: CLONAZEPAM
  30. BENLYSTA [Concomitant]
     Active Substance: BELIMUMAB
     Route: 042
  31. HYDROXYCHLOROQUINE [Concomitant]
     Active Substance: HYDROXYCHLOROQUINE
  32. GABAPENTIN [Concomitant]
     Active Substance: GABAPENTIN
  33. PANTOPRAZOLE [Concomitant]
     Active Substance: PANTOPRAZOLE
  34. PRAZOSIN [Concomitant]
     Active Substance: PRAZOSIN

REACTIONS (1)
  - Respiratory tract infection [Not Recovered/Not Resolved]
